FAERS Safety Report 15965384 (Version 1)
Quarter: 2019Q1

REPORT INFORMATION
  Report Type: Spontaneous
  Country: FR (occurrence: FR)
  Receive Date: 20190215
  Receipt Date: 20190215
  Transmission Date: 20190418
  Serious: Yes (Death)
  Sender: FDA-Public Use
  Company Number: FR-TEVA-2019-FR-1011139

PATIENT
  Age: 78 Year
  Sex: Female
  Weight: 59 kg

DRUGS (4)
  1. RAMIPRIL. [Concomitant]
     Active Substance: RAMIPRIL
  2. FENOFIBRATE. [Concomitant]
     Active Substance: FENOFIBRATE
  3. LEVOTHYROX [Concomitant]
     Active Substance: LEVOTHYROXINE
  4. CLOPIDOGREL (CHLORHYDRATE DE) [Suspect]
     Active Substance: CLOPIDOGREL HYDROCHLORIDE
     Indication: ISCHAEMIC STROKE
     Dosage: 75 MILLIGRAM DAILY;
     Route: 048
     Dates: start: 2003, end: 20190112

REACTIONS (1)
  - Haemorrhagic stroke [Fatal]

NARRATIVE: CASE EVENT DATE: 20190112
